FAERS Safety Report 9961611 (Version 2)
Quarter: 2014Q1

REPORT INFORMATION
  Report Type: Report from Study
  Country: US (occurrence: US)
  Receive Date: 20140305
  Receipt Date: 20140305
  Transmission Date: 20141002
  Serious: No
  Sender: FDA-Public Use
  Company Number: US-ABBVIE-13P-163-1107669-00

PATIENT
  Age: 83 Year
  Sex: Female

DRUGS (11)
  1. HUMIRA [Suspect]
     Indication: RHEUMATOID ARTHRITIS
     Dates: start: 20130213
  2. REMICADE [Suspect]
     Indication: PRODUCT USED FOR UNKNOWN INDICATION
  3. MULTIVITAMIN [Concomitant]
     Indication: PRODUCT USED FOR UNKNOWN INDICATION
     Dosage: DAILY
  4. HYDROCHLOROTHIAZIDE [Concomitant]
     Indication: HYPERTENSION
     Dosage: DAILY
  5. LEUCOVORIN [Concomitant]
     Indication: MOUTH ULCERATION
  6. LEUCOVORIN [Concomitant]
     Indication: PROPHYLAXIS
  7. LEUCOVORIN [Concomitant]
  8. CARVEDILOL [Concomitant]
     Indication: HYPERTENSION
  9. FISH OIL [Concomitant]
     Indication: ARTHRITIS
     Dosage: DAILY
  10. HYDROXYCHLOROQUINE [Concomitant]
     Indication: ARTHRITIS
     Dosage: DAILY
  11. PREDNISONE [Concomitant]
     Indication: PRODUCT USED FOR UNKNOWN INDICATION

REACTIONS (1)
  - Oral herpes [Recovering/Resolving]
